FAERS Safety Report 15057416 (Version 2)
Quarter: 2018Q3

REPORT INFORMATION
  Report Type: Spontaneous
  Country: FR (occurrence: FR)
  Receive Date: 20180625
  Receipt Date: 20180803
  Transmission Date: 20181010
  Serious: Yes (Other)
  Sender: FDA-Public Use
  Company Number: FR-ACCORD-068581

PATIENT
  Sex: Male

DRUGS (2)
  1. PROPECIA [Suspect]
     Active Substance: FINASTERIDE
     Indication: PRODUCT USED FOR UNKNOWN INDICATION
     Route: 048
  2. FINASTERIDE. [Suspect]
     Active Substance: FINASTERIDE
     Indication: PRODUCT USED FOR UNKNOWN INDICATION

REACTIONS (8)
  - Cognitive disorder [Unknown]
  - Asthenia [Unknown]
  - Nightmare [Unknown]
  - Sexual dysfunction [Unknown]
  - Insomnia [Unknown]
  - Physical disability [Unknown]
  - Abnormal behaviour [Unknown]
  - Suicide attempt [Unknown]
